FAERS Safety Report 9703792 (Version 1)
Quarter: 2013Q4

REPORT INFORMATION
  Report Type: Spontaneous
  Country: US (occurrence: None)
  Receive Date: 20131121
  Receipt Date: 20131121
  Transmission Date: 20140711
  Serious: No
  Sender: FDA-Public Use
  Company Number: None

PATIENT
  Age: 56 Year
  Sex: Male

DRUGS (1)
  1. TECFIDERA 240 MG BIOGEN IDEC [Suspect]
     Indication: MULTIPLE SCLEROSIS
     Dosage: TECFIDERA 240MG TWICE A DAY ORALLY
     Route: 048
     Dates: start: 20131010

REACTIONS (4)
  - Nausea [None]
  - Weight decreased [None]
  - Vomiting [None]
  - Drug ineffective [None]
